FAERS Safety Report 24410878 (Version 1)
Quarter: 2024Q4

REPORT INFORMATION
  Report Type: Spontaneous
  Country: GB (occurrence: GB)
  Receive Date: 20241008
  Receipt Date: 20241008
  Transmission Date: 20250115
  Serious: Yes (Other)
  Sender: TEVA
  Company Number: GB-MHRA-WEBRADR-202410022110097720-YLNPR

PATIENT
  Age: 20 Year
  Sex: Male

DRUGS (1)
  1. FLUOXETINE [Suspect]
     Active Substance: FLUOXETINE HYDROCHLORIDE
     Route: 065

REACTIONS (3)
  - Libido disorder [Not Recovered/Not Resolved]
  - Ejaculation failure [Recovered/Resolved]
  - Male orgasmic disorder [Recovered/Resolved]
